FAERS Safety Report 21018813 (Version 1)
Quarter: 2022Q3

REPORT INFORMATION
  Report Type: Spontaneous
  Country: IL (occurrence: IL)
  Receive Date: 20220628
  Receipt Date: 20220628
  Transmission Date: 20221027
  Serious: Yes (Other)
  Sender: FDA-Public Use
  Company Number: IL-NOVARTISPH-NVSC2022IL145095

PATIENT
  Age: 65 Year

DRUGS (6)
  1. FLUDARABINE PHOSPHATE [Suspect]
     Active Substance: FLUDARABINE PHOSPHATE
     Indication: Acute myeloid leukaemia refractory
     Dosage: 30 MG/M2, QD (RANGE 20-30)
     Route: 065
  2. CYTARABINE [Suspect]
     Active Substance: CYTARABINE
     Indication: Acute myeloid leukaemia refractory
     Dosage: 2000 MG/M2, QD (RANGE 500-2000, MEIDAN 1500 MG/M2 )
     Route: 065
  3. VENETOCLAX [Suspect]
     Active Substance: VENETOCLAX
     Indication: Acute myeloid leukaemia refractory
     Dosage: UNK
     Route: 065
  4. IDARUBICIN [Suspect]
     Active Substance: IDARUBICIN
     Indication: Acute myeloid leukaemia refractory
     Dosage: 10 MG/M2, QD (RANGE 6-10, MEDIAN 8)
     Route: 065
  5. IDARUBICIN [Suspect]
     Active Substance: IDARUBICIN
     Indication: Immunosuppressant drug therapy
  6. AZACITIDINE [Concomitant]
     Active Substance: AZACITIDINE
     Indication: Immunosuppressant drug therapy
     Dosage: UNK
     Route: 065

REACTIONS (2)
  - Bronchopulmonary aspergillosis [Recovered/Resolved]
  - Product use in unapproved indication [Unknown]
